FAERS Safety Report 9447359 (Version 2)
Quarter: 2014Q1

REPORT INFORMATION
  Report Type: Report from Study
  Country: US (occurrence: US)
  Receive Date: 20130808
  Receipt Date: 20140217
  Transmission Date: 20141002
  Serious: Yes (Hospitalization)
  Sender: FDA-Public Use
  Company Number: US-ROCHE-1258966

PATIENT
  Age: 27 Year
  Sex: Female
  Weight: 146 kg

DRUGS (3)
  1. PEG-INTERFERON ALFA 2A [Suspect]
     Indication: CHRONIC HEPATITIS C
     Dosage: DATE OF MOST RECENT DOSE: 28/JUN/2013
     Route: 065
     Dates: start: 20130118
  2. RIBAVIRIN [Suspect]
     Indication: CHRONIC HEPATITIS C
     Dosage: DATE OF MOST RECENT DOSE: 05/JUL/2013
     Route: 065
     Dates: start: 20130119
  3. TELAPREVIR [Suspect]
     Indication: CHRONIC HEPATITIS C
     Dosage: DATE OF MOST RECENT DOSE: 12/APR/2013
     Route: 065
     Dates: start: 20130119

REACTIONS (1)
  - Acute respiratory distress syndrome [Recovered/Resolved]
